FAERS Safety Report 6442968-8 (Version None)
Quarter: 2009Q4

REPORT INFORMATION
  Report Type: 
  Country: None (occurrence: None)
  Receive Date: 20091117
  Receipt Date: 20091106
  Transmission Date: 20100525
  Serious: No
  Sender: FDA-Public Use
  Company Number: US-B.I. PHARMACEUTICALS,INC./RIDGEFIELD-2009-BP-13043BP

PATIENT
  Sex: Male

DRUGS (8)
  1. SPIRIVA [Suspect]
     Indication: EMPHYSEMA
     Dosage: 18 MCG
     Route: 055
     Dates: start: 20090901
  2. ZOLOFT [Concomitant]
     Indication: DEPRESSION
     Dates: start: 20010101
  3. XANAX [Concomitant]
     Indication: DEPRESSION
     Dates: start: 20010101
  4. ASCORBIC ACID [Concomitant]
     Indication: PROPHYLAXIS
  5. ZANTAC [Concomitant]
     Indication: DYSPEPSIA
     Route: 048
     Dates: start: 20090601
  6. VITAMIN E [Concomitant]
     Indication: PROPHYLAXIS
  7. VITAMIN B-12 [Concomitant]
     Indication: PROPHYLAXIS
  8. MEDICATION NOT FURTHER SPECIFIED [Concomitant]
     Indication: BLOOD CHOLESTEROL INCREASED

REACTIONS (10)
  - COUGH [None]
  - DYSPHEMIA [None]
  - EJACULATION DISORDER [None]
  - HAEMATOSPERMIA [None]
  - INCREASED UPPER AIRWAY SECRETION [None]
  - MOBILITY DECREASED [None]
  - NERVOUSNESS [None]
  - TESTICULAR DISORDER [None]
  - TREMOR [None]
  - VISION BLURRED [None]
